FAERS Safety Report 7164674-7 (Version None)
Quarter: 2010Q4

REPORT INFORMATION
  Report Type: 
  Country: None (occurrence: None)
  Receive Date: 20101215
  Receipt Date: 20100923
  Transmission Date: 20110411
  Serious: Yes (Other)
  Sender: FDA-Public Use
  Company Number: US-PURDUE-USA-2010-0047403

PATIENT

DRUGS (2)
  1. OXYCONTIN [Suspect]
     Indication: BACK PAIN
     Dosage: 80 MG, QID
     Dates: start: 20100901
  2. OXYCONTIN [Suspect]
     Indication: PAIN

REACTIONS (10)
  - ABDOMINAL PAIN UPPER [None]
  - CHILLS [None]
  - COLONOSCOPY [None]
  - DRUG INEFFECTIVE [None]
  - DRUG WITHDRAWAL SYNDROME [None]
  - GASTROINTESTINAL DISORDER [None]
  - HYPERHIDROSIS [None]
  - MEDICATION RESIDUE [None]
  - TABLET ISSUE [None]
  - UNEVALUABLE EVENT [None]
